FAERS Safety Report 14152968 (Version 3)
Quarter: 2017Q4

REPORT INFORMATION
  Report Type: Spontaneous
  Country: GR (occurrence: GR)
  Receive Date: 20171102
  Receipt Date: 20171123
  Transmission Date: 20180321
  Serious: Yes (Other)
  Sender: FDA-Public Use
  Company Number: GR-BRISTOL-MYERS SQUIBB COMPANY-BMS-2017-096389

PATIENT
  Age: 53 Year
  Sex: Male

DRUGS (1)
  1. NIVOLUMAB [Suspect]
     Active Substance: NIVOLUMAB
     Indication: B-CELL LYMPHOMA
     Route: 065

REACTIONS (8)
  - Dysarthria [Unknown]
  - Ataxia [Unknown]
  - Cognitive disorder [Unknown]
  - B-cell lymphoma recurrent [Unknown]
  - Diplopia [Unknown]
  - Depression [Unknown]
  - Product use in unapproved indication [Unknown]
  - Central nervous system inflammation [Unknown]

NARRATIVE: CASE EVENT DATE: 201606
